FAERS Safety Report 13520981 (Version 2)
Quarter: 2017Q3

REPORT INFORMATION
  Report Type: Spontaneous
  Country: US (occurrence: US)
  Receive Date: 20170508
  Receipt Date: 20170705
  Transmission Date: 20171127
  Serious: No
  Sender: FDA-Public Use
  Company Number: US-JNJFOC-20170420522

PATIENT
  Age: 67 Year
  Sex: Female
  Weight: 86.18 kg

DRUGS (1)
  1. DURAGESIC [Suspect]
     Active Substance: FENTANYL
     Indication: PAIN
     Route: 062
     Dates: start: 1997

REACTIONS (5)
  - Product quality issue [Unknown]
  - Tooth disorder [Unknown]
  - Inappropriate schedule of drug administration [Unknown]
  - Abnormal loss of weight [Unknown]
  - Malaise [Unknown]

NARRATIVE: CASE EVENT DATE: 20170416
